FAERS Safety Report 7470689-1 (Version None)
Quarter: 2011Q2

REPORT INFORMATION
  Report Type: 
  Country: None (occurrence: None)
  Receive Date: 20110510
  Receipt Date: 20110421
  Transmission Date: 20111010
  Serious: Yes (Other)
  Sender: FDA-Public Use
  Company Number: FR-BAYER-2011-039107

PATIENT
  Age: 65 Year
  Sex: Male

DRUGS (1)
  1. CODEINE PHOSPHATE AND ACETAMINOPHEN [Suspect]
     Dosage: UNK

REACTIONS (2)
  - HYPERTENSION [None]
  - DRUG DEPENDENCE [None]
